FAERS Safety Report 8925427 (Version 2)
Quarter: 2013Q1

REPORT INFORMATION
  Report Type: Spontaneous
  Country: US (occurrence: US)
  Receive Date: 20121126
  Receipt Date: 20130213
  Transmission Date: 20140127
  Serious: Yes (Death)
  Sender: FDA-Public Use
  Company Number: US-GILEAD-2012-0065122

PATIENT
  Sex: Female

DRUGS (1)
  1. CAYSTON [Suspect]
     Indication: PNEUMONIA PSEUDOMONAS AERUGINOSA
     Dosage: UNK
     Dates: start: 20110901, end: 20120528

REACTIONS (3)
  - Pulmonary haemorrhage [Fatal]
  - Cystic fibrosis [Fatal]
  - Respiratory disorder [Fatal]
